FAERS Safety Report 12775575 (Version 3)
Quarter: 2017Q1

REPORT INFORMATION
  Report Type: Spontaneous
  Country: FR (occurrence: FR)
  Receive Date: 20160923
  Receipt Date: 20170330
  Transmission Date: 20170428
  Serious: Yes (Other)
  Sender: FDA-Public Use
  Company Number: FR-PFIZER INC-2016439566

PATIENT
  Age: 81 Year
  Sex: Female

DRUGS (11)
  1. FLUOXETIN [Concomitant]
     Active Substance: FLUOXETINE HYDROCHLORIDE
     Dosage: UNK
  2. ACTONEL [Concomitant]
     Active Substance: RISEDRONATE SODIUM
     Dosage: UNK
  3. CERIS [Suspect]
     Active Substance: TROSPIUM CHLORIDE
     Indication: URINARY TRACT DISORDER
     Dosage: 40 MG, QD
     Route: 048
     Dates: start: 2014, end: 20160615
  4. CRESTOR [Concomitant]
     Active Substance: ROSUVASTATIN CALCIUM
     Dosage: UNK
  5. NOCTAMIDE [Concomitant]
     Active Substance: LORMETAZEPAM
     Dosage: UNK
  6. UVEDOSE [Concomitant]
     Active Substance: CHOLECALCIFEROL
     Dosage: UNK
  7. LERCAN [Concomitant]
     Active Substance: LERCANIDIPINE
     Dosage: UNK
  8. VESICARE [Suspect]
     Active Substance: SOLIFENACIN SUCCINATE
     Indication: URINARY TRACT DISORDER
     Dosage: 5 MG, 1X/DAY
     Route: 048
     Dates: end: 20160615
  9. HYDROCORTISONE. [Concomitant]
     Active Substance: HYDROCORTISONE
     Dosage: UNK
  10. EUPANTOL [Suspect]
     Active Substance: PANTOPRAZOLE SODIUM
     Dosage: 40 MG, 1X/DAY
     Route: 048
     Dates: end: 20160615
  11. TOPALGIC /00599202/ [Concomitant]
     Active Substance: TRAMADOL
     Dosage: UNK

REACTIONS (5)
  - Dry mouth [Recovered/Resolved]
  - Constipation [Recovered/Resolved]
  - Hallucination, visual [Recovered/Resolved]
  - Delusional disorder, unspecified type [Recovered/Resolved]
  - Confusional state [Recovering/Resolving]

NARRATIVE: CASE EVENT DATE: 201605
